FAERS Safety Report 4316310-2 (Version None)
Quarter: 2004Q1

REPORT INFORMATION
  Report Type: 
  Country: None (occurrence: None)
  Receive Date: 20040312
  Receipt Date: 20040312
  Transmission Date: 20041129
  Serious: Yes (Life-Threatening, Hospitalization)
  Sender: FDA-Public Use
  Company Number: None

PATIENT
  Sex: Female
  Weight: 75 kg

DRUGS (3)
  1. BUSULFAN [Suspect]
     Indication: BONE MARROW TRANSPLANT
     Dosage: 1 MG/KG Q 6H X 16 PO
     Route: 048
     Dates: start: 20031111, end: 20031114
  2. BUSULFAN [Suspect]
     Indication: CHEMOTHERAPY
     Dosage: 1 MG/KG Q 6H X 16 PO
     Route: 048
     Dates: start: 20031111, end: 20031114
  3. ETOPOSIDE [Concomitant]

REACTIONS (3)
  - BIOPSY LUNG ABNORMAL [None]
  - LUNG INJURY [None]
  - PNEUMONIA [None]
